FAERS Safety Report 5673341-8 (Version None)
Quarter: 2008Q2

REPORT INFORMATION
  Report Type: 
  Country: None (occurrence: None)
  Receive Date: 20080219
  Receipt Date: 20071106
  Transmission Date: 20081010
  Serious: No
  Sender: FDA-Public Use
  Company Number: TPA2007A02295

PATIENT
  Age: 70 Year
  Sex: Male
  Weight: 73.9363 kg

DRUGS (6)
  1. ROZEREM [Suspect]
     Indication: INSOMNIA
     Dosage: 8 MG, HS, PER ORAL
     Route: 048
     Dates: start: 20061101, end: 20061101
  2. NORPACE CR (DISOPYRAMIDE PHOSPHATE) [Concomitant]
  3. TENORMIN [Concomitant]
  4. LANOXIN [Concomitant]
  5. DIOVAN HCT [Concomitant]
  6. COUMADIN [Concomitant]

REACTIONS (1)
  - INITIAL INSOMNIA [None]
